FAERS Safety Report 14530822 (Version 1)
Quarter: 2018Q1

REPORT INFORMATION
  Report Type: Spontaneous
  Country: JP (occurrence: JP)
  Receive Date: 20180214
  Receipt Date: 20180214
  Transmission Date: 20180509
  Serious: Yes (Hospitalization)
  Sender: FDA-Public Use
  Company Number: JP-IMPAX LABORATORIES, INC-2018-IPXL-00229

PATIENT
  Age: 21 Year
  Sex: Male

DRUGS (3)
  1. URSODIOL. [Suspect]
     Active Substance: URSODIOL
     Indication: JAUNDICE
     Dosage: 300 MG, DAILY
     Route: 065
  2. URSODIOL. [Suspect]
     Active Substance: URSODIOL
     Indication: PRODUCT USE IN UNAPPROVED INDICATION
     Dosage: 900 MG, DAILY
     Route: 065
  3. URSODIOL. [Suspect]
     Active Substance: URSODIOL
     Indication: ABDOMINAL PAIN
     Dosage: 600 MG, DAILY
     Route: 065

REACTIONS (3)
  - Porphyria non-acute [Recovering/Resolving]
  - Liver injury [Recovering/Resolving]
  - Drug ineffective for unapproved indication [Unknown]
